FAERS Safety Report 15235478 (Version 2)
Quarter: 2018Q4

REPORT INFORMATION
  Report Type: Spontaneous
  Country: AT (occurrence: AT)
  Receive Date: 20180803
  Receipt Date: 20181103
  Transmission Date: 20190204
  Serious: Yes (Hospitalization)
  Sender: FDA-Public Use
  Company Number: AT-ACCORD-070327

PATIENT
  Age: 44 Year
  Sex: Male
  Weight: 70 kg

DRUGS (15)
  1. QUILONORM RETARD [Suspect]
     Active Substance: LITHIUM CARBONATE
     Indication: PRODUCT USED FOR UNKNOWN INDICATION
     Dosage: ALSO RECEIVED 1350 MG FROM 14-MAR-2017 TO 15-MAR-2017.
     Route: 048
     Dates: start: 20170313, end: 20170313
  2. DEXMEDETOMIDINE. [Suspect]
     Active Substance: DEXMEDETOMIDINE
     Indication: PRODUCT USED FOR UNKNOWN INDICATION
     Dosage: TILL 5 ML/H
     Route: 042
     Dates: start: 20170422, end: 20170423
  3. TEMESTA [LORAZEPAM] [Concomitant]
     Active Substance: LORAZEPAM
     Dosage: 8-12.5 MG
     Dates: start: 20170406, end: 201706
  4. QUETIAPINE. [Concomitant]
     Active Substance: QUETIAPINE
     Indication: PRODUCT USED FOR UNKNOWN INDICATION
     Dates: end: 20170313
  5. CISORDINOL [Concomitant]
     Active Substance: ZUCLOPENTHIXOL
     Dosage: 25-50 MG
     Dates: start: 20170414, end: 201706
  6. ZYPREXA [Suspect]
     Active Substance: OLANZAPINE
     Indication: PRODUCT USED FOR UNKNOWN INDICATION
     Dosage: 30 MG FROM 08-APR-2017
     Route: 048
     Dates: start: 20170314, end: 20170314
  7. LORAZEPAM. [Concomitant]
     Active Substance: LORAZEPAM
     Indication: PRODUCT USED FOR UNKNOWN INDICATION
     Dates: start: 20170406, end: 201706
  8. DEPAKINE [Concomitant]
     Active Substance: VALPROATE SODIUM
     Indication: PRODUCT USED FOR UNKNOWN INDICATION
     Dosage: 2000 MG, UNKNOWN
     Dates: start: 20170317, end: 20170317
  9. DESMOPRESSIN [Concomitant]
     Active Substance: DESMOPRESSIN
     Dosage: 2-8 MCG
     Dates: start: 20170404, end: 20170428
  10. CISORDINOL [Concomitant]
     Active Substance: ZUCLOPENTHIXOL
     Indication: PRODUCT USED FOR UNKNOWN INDICATION
     Dates: start: 20170414
  11. SEROQUEL [Concomitant]
     Active Substance: QUETIAPINE FUMARATE
     Dosage: 300-900 MG
     Dates: start: 20170313, end: 20170315
  12. DEXMEDETOMIDINE. [Suspect]
     Active Substance: DEXMEDETOMIDINE
     Indication: PRODUCT USED FOR UNKNOWN INDICATION
     Route: 042
     Dates: start: 20170314, end: 20170329
  13. LITHIUM. [Suspect]
     Active Substance: LITHIUM
     Indication: PRODUCT USED FOR UNKNOWN INDICATION
     Dosage: 1800 MG 16-MAR-2017 TO 18-MAR-2017
     Dates: end: 20170313
  14. ABILIFY [Concomitant]
     Active Substance: ARIPIPRAZOLE
     Indication: PRODUCT USED FOR UNKNOWN INDICATION
     Dosage: 10 MG, UNKNOWN
     Dates: start: 20170314, end: 20170318
  15. UNASYN [Concomitant]
     Active Substance: AMPICILLIN SODIUM\SULBACTAM SODIUM
     Dates: start: 20170317, end: 20170317

REACTIONS (4)
  - Nephrogenic diabetes insipidus [Recovered/Resolved]
  - Agitation [Unknown]
  - Hyperthermia [Recovered/Resolved]
  - Pneumonia aspiration [Recovered/Resolved]

NARRATIVE: CASE EVENT DATE: 20170314
